FAERS Safety Report 7563785-1 (Version None)
Quarter: 2011Q2

REPORT INFORMATION
  Report Type: 
  Country: None (occurrence: None)
  Receive Date: 20110622
  Receipt Date: 20110615
  Transmission Date: 20111010
  Serious: Yes (Death, Hospitalization)
  Sender: FDA-Public Use
  Company Number: US-BAXTER-2011BH019862

PATIENT
  Age: 62 Year
  Sex: Female

DRUGS (1)
  1. DIANEAL [Suspect]
     Indication: PERITONEAL DIALYSIS
     Route: 033
     Dates: start: 20100401, end: 20110416

REACTIONS (3)
  - CHEST PAIN [None]
  - CARDIAC ARREST [None]
  - ABDOMINAL PAIN [None]
